FAERS Safety Report 15059901 (Version 1)
Quarter: 2018Q2

REPORT INFORMATION
  Report Type: Spontaneous
  Country: US (occurrence: US)
  Receive Date: 20180625
  Receipt Date: 20180625
  Transmission Date: 20180711
  Serious: No
  Sender: FDA-Public Use
  Company Number: US-SA-2018SA163931

PATIENT
  Sex: Male

DRUGS (6)
  1. LOVASTATIN. [Concomitant]
     Active Substance: LOVASTATIN
  2. LOVASTATINE [Concomitant]
     Active Substance: LOVASTATIN
  3. LATANOPROST. [Concomitant]
     Active Substance: LATANOPROST
  4. PATANOL [Concomitant]
     Active Substance: OLOPATADINE HYDROCHLORIDE
  5. DUPIXENT [Suspect]
     Active Substance: DUPILUMAB
     Indication: DERMATITIS ATOPIC
     Dosage: 300 MG, QOW
     Route: 058
     Dates: start: 201802
  6. ZIOPTAN [Concomitant]
     Active Substance: TAFLUPROST

REACTIONS (1)
  - Eye irritation [Not Recovered/Not Resolved]
